FAERS Safety Report 20614744 (Version 1)
Quarter: 2022Q1

REPORT INFORMATION
  Report Type: Other
  Country: CN (occurrence: None)
  Receive Date: 20220321
  Receipt Date: 20220321
  Transmission Date: 20220423
  Serious: Yes (Other)
  Sender: FDA-Public Use
  Company Number: CN-ROCHE-3054992

PATIENT

DRUGS (4)
  1. TRASTUZUMAB [Suspect]
     Active Substance: TRASTUZUMAB
     Indication: HER2 positive gastric cancer
     Route: 041
  2. TRASTUZUMAB [Suspect]
     Active Substance: TRASTUZUMAB
     Dosage: ON DAYS 1, 8, AND 15
     Route: 041
  3. CISPLATIN [Suspect]
     Active Substance: CISPLATIN
     Indication: HER2 positive gastric cancer
     Dosage: ON DAYS 1 TO 3 OF A CHEMOTHERAPY CYCLE
     Route: 041
  4. IRINOTECAN [Suspect]
     Active Substance: IRINOTECAN
     Indication: HER2 positive gastric cancer
     Dosage: ON DAYS 1 AND 8 OF A CHEMOTHERAPY CYCLE
     Route: 041

REACTIONS (1)
  - Myelosuppression [Unknown]
